FAERS Safety Report 7059967-8 (Version None)
Quarter: 2010Q4

REPORT INFORMATION
  Report Type: 
  Country: None (occurrence: None)
  Receive Date: 20101025
  Receipt Date: 20101015
  Transmission Date: 20110411
  Serious: Yes (Other)
  Sender: FDA-Public Use
  Company Number: RU-ASTRAZENECA-2010SE49061

PATIENT
  Age: 48 Year
  Sex: Male
  Weight: 66 kg

DRUGS (1)
  1. NAROPIN [Suspect]
     Indication: SPINAL ANAESTHESIA
     Route: 037
     Dates: start: 20101015, end: 20101015

REACTIONS (2)
  - DRUG INEFFECTIVE [None]
  - SENSORIMOTOR DISORDER [None]
